FAERS Safety Report 6191566-2 (Version None)
Quarter: 2009Q2

REPORT INFORMATION
  Report Type: 
  Country: None (occurrence: None)
  Receive Date: 20090515
  Receipt Date: 20070816
  Transmission Date: 20091009
  Serious: Yes (Hospitalization, Other)
  Sender: FDA-Public Use
  Company Number: US-ASTRAZENECA-2007UW06154

PATIENT
  Age: 21691 Day
  Sex: Female
  Weight: 68.5 kg

DRUGS (26)
  1. SEROQUEL [Suspect]
     Indication: BIPOLAR DISORDER
     Dosage: 25-200MG
     Route: 048
     Dates: start: 20010627
  2. SEROQUEL [Suspect]
     Indication: DEPRESSION
     Dosage: 25-200MG
     Route: 048
     Dates: start: 20010627
  3. SEROQUEL [Suspect]
     Dosage: 100 MG TO 200 MG
     Route: 048
     Dates: start: 20021119, end: 20040607
  4. SEROQUEL [Suspect]
     Dosage: 100 MG TO 200 MG
     Route: 048
     Dates: start: 20021119, end: 20040607
  5. SEROQUEL [Suspect]
     Route: 048
     Dates: start: 20040608, end: 20060413
  6. SEROQUEL [Suspect]
     Route: 048
     Dates: start: 20040608, end: 20060413
  7. RISPERDAL [Suspect]
     Indication: BIPOLAR DISORDER
     Dosage: .5 MG TO 1 MG EVERY DAY
     Route: 065
     Dates: start: 19990629, end: 20020425
  8. RISPERDAL [Suspect]
     Indication: DEPRESSION
     Dosage: .5 MG TO 1 MG EVERY DAY
     Route: 065
     Dates: start: 19990629, end: 20020425
  9. ABILIFY [Concomitant]
     Route: 065
  10. METFORMIN HCL [Concomitant]
     Route: 048
  11. METOPROLOL [Concomitant]
     Route: 048
  12. LISINOPRIL [Concomitant]
     Dosage: 5MG-20MG
     Route: 048
  13. LIPITOR [Concomitant]
     Route: 048
  14. LIPITOR [Concomitant]
     Route: 048
  15. TAMOXIFEN CITRATE [Concomitant]
     Route: 048
  16. ASPIRIN [Concomitant]
     Route: 048
  17. LEVOXYL [Concomitant]
     Dosage: 25MCG-125MCG
     Route: 048
  18. MIRTAZAPINE [Concomitant]
     Route: 048
  19. PLAVIX [Concomitant]
     Route: 048
  20. AVANDIA [Concomitant]
     Route: 065
  21. NAPROXEN [Concomitant]
     Route: 048
  22. LEXAPRO [Concomitant]
     Route: 048
  23. SERZONE [Concomitant]
     Dosage: 150MG-250MG
     Route: 048
  24. PREVACID [Concomitant]
     Route: 065
  25. ZETIA [Concomitant]
     Route: 065
  26. NITROGLYCERIN [Concomitant]
     Route: 065

REACTIONS (13)
  - CORONARY ARTERY DISEASE [None]
  - COUGH [None]
  - DIABETES MELLITUS [None]
  - DIZZINESS [None]
  - EAR PAIN [None]
  - FIBROMYALGIA [None]
  - HAEMORRHOIDS [None]
  - HYPERTENSION [None]
  - HYPOTHYROIDISM [None]
  - JOINT INJURY [None]
  - PANCREATITIS ACUTE [None]
  - POLLAKIURIA [None]
  - TYPE 2 DIABETES MELLITUS [None]
